FAERS Safety Report 7719025-3 (Version None)
Quarter: 2011Q3

REPORT INFORMATION
  Report Type: 
  Country: None (occurrence: None)
  Receive Date: 20110824
  Receipt Date: 20110810
  Transmission Date: 20111222
  Serious: Yes (Other)
  Sender: FDA-Public Use
  Company Number: 7076307

PATIENT
  Age: 24 Year
  Sex: Female

DRUGS (3)
  1. LEVOTHYROXINE SODIUM [Suspect]
     Indication: THYROIDITIS
     Dosage: 1 DF, ORAL
     Route: 048
  2. MYTELASE [Suspect]
     Indication: MUSCULAR WEAKNESS
  3. LANSOPRAZOLE [Concomitant]

REACTIONS (4)
  - MYASTHENIA GRAVIS [None]
  - CONDITION AGGRAVATED [None]
  - DRUG INTERACTION [None]
  - BLOOD THYROID STIMULATING HORMONE INCREASED [None]
